FAERS Safety Report 11603904 (Version 1)
Quarter: 2015Q4

REPORT INFORMATION
  Report Type: Spontaneous
  Country: FR (occurrence: FR)
  Receive Date: 20151007
  Receipt Date: 20151007
  Transmission Date: 20160304
  Serious: Yes (Life-Threatening, Hospitalization)
  Sender: FDA-Public Use
  Company Number: FR-ACCORD-034136

PATIENT
  Age: 39 Year
  Sex: Male

DRUGS (8)
  1. OFLOXACIN. [Concomitant]
     Active Substance: OFLOXACIN
  2. OXALIPLATIN HOSPIRA [Concomitant]
     Active Substance: OXALIPLATIN
     Route: 042
     Dates: start: 20150529
  3. ALPRAZOLAM. [Concomitant]
     Active Substance: ALPRAZOLAM
  4. PIPERACILLIN/TAZOBACTAM [Concomitant]
  5. FLUOROURACIL ACCORD [Suspect]
     Active Substance: FLUOROURACIL
     Indication: PRODUCT USED FOR UNKNOWN INDICATION
     Dosage: STRENGTH: 50 MG/ML
     Route: 042
     Dates: start: 20150529
  6. IRINOTECAN MYLAN [Concomitant]
     Active Substance: IRINOTECAN
     Dosage: STRENGTH: 20 MG/ML
     Route: 042
     Dates: start: 20150529
  7. LEVOFOLINATE DE CALCIUM WINTHROP [Concomitant]
     Active Substance: LEVOLEUCOVORIN CALCIUM
     Route: 042
     Dates: start: 20150529
  8. LOVENOX [Concomitant]
     Active Substance: ENOXAPARIN SODIUM

REACTIONS (3)
  - Chills [Unknown]
  - Agranulocytosis [Recovered/Resolved]
  - Hyperthermia [Unknown]

NARRATIVE: CASE EVENT DATE: 20150608
